FAERS Safety Report 8079381-6 (Version None)
Quarter: 2012Q1

REPORT INFORMATION
  Report Type: 
  Country: None (occurrence: None)
  Receive Date: 20120128
  Receipt Date: 20110822
  Transmission Date: 20120608
  Serious: No
  Sender: FDA-Public Use
  Company Number: US-ABBOTT-11P-163-0848602-00

PATIENT
  Age: 49 Year
  Sex: Male

DRUGS (3)
  1. HUMIRA [Suspect]
     Indication: CROHN'S DISEASE
     Dates: start: 20110401, end: 20110812
  2. IMURAN [Concomitant]
     Indication: CROHN'S DISEASE
     Dosage: DAILY
  3. PENTASA [Concomitant]
     Indication: CROHN'S DISEASE

REACTIONS (3)
  - PYREXIA [None]
  - CHILLS [None]
  - FATIGUE [None]
